FAERS Safety Report 10147185 (Version 1)
Quarter: 2014Q2

REPORT INFORMATION
  Report Type: Spontaneous
  Country: BR (occurrence: BR)
  Receive Date: 20140501
  Receipt Date: 20140501
  Transmission Date: 20141212
  Serious: Yes (Hospitalization)
  Sender: FDA-Public Use
  Company Number: BR-009507513-1404BRA015648

PATIENT
  Sex: Male

DRUGS (1)
  1. EMEND INJETAVEL [Suspect]
     Indication: VOMITING
     Dosage: UNK UNK, ONCE
     Route: 042

REACTIONS (1)
  - Phlebitis [Unknown]
